FAERS Safety Report 6979011-8 (Version None)
Quarter: 2010Q3

REPORT INFORMATION
  Report Type: 
  Country: None (occurrence: None)
  Receive Date: 20100824
  Receipt Date: 20100609
  Transmission Date: 20110219
  Serious: Yes (Hospitalization)
  Sender: FDA-Public Use
  Company Number: 309896

PATIENT
  Age: 55 Year
  Sex: Female
  Weight: 122.4 kg

DRUGS (3)
  1. VICTOZA [Suspect]
     Indication: TYPE 2 DIABETES MELLITUS
     Dosage: 0.6 MG, QD, SUBCUTANEOUS; 1.2. MG, QD, SUBCUTANEOUS; 1.8 MG, QD, SUBCUTANEOUS
     Route: 058
     Dates: start: 20100505, end: 20100512
  2. VICTOZA [Suspect]
     Indication: TYPE 2 DIABETES MELLITUS
     Dosage: 0.6 MG, QD, SUBCUTANEOUS; 1.2. MG, QD, SUBCUTANEOUS; 1.8 MG, QD, SUBCUTANEOUS
     Route: 058
     Dates: start: 20100513, end: 20100520
  3. VICTOZA [Suspect]
     Indication: TYPE 2 DIABETES MELLITUS
     Dosage: 0.6 MG, QD, SUBCUTANEOUS; 1.2. MG, QD, SUBCUTANEOUS; 1.8 MG, QD, SUBCUTANEOUS
     Route: 058
     Dates: start: 20100521, end: 20100605

REACTIONS (1)
  - PANCREATITIS ACUTE [None]
